FAERS Safety Report 10094265 (Version 6)
Quarter: 2016Q1

REPORT INFORMATION
  Report Type: Spontaneous
  Country: US (occurrence: US)
  Receive Date: 20140422
  Receipt Date: 20160226
  Transmission Date: 20160525
  Serious: Yes (Hospitalization, Disabling, Other)
  Sender: FDA-Public Use
  Company Number: US-009507513-1404USA006205

PATIENT
  Sex: Female
  Weight: 64.85 kg

DRUGS (9)
  1. PRILOSEC [Concomitant]
     Active Substance: OMEPRAZOLE MAGNESIUM
     Indication: GASTROOESOPHAGEAL REFLUX DISEASE
     Dosage: UNK
     Route: 048
     Dates: start: 1999
  2. ALENDRONATE SODIUM. [Suspect]
     Active Substance: ALENDRONATE SODIUM
     Indication: OSTEOPOROSIS PROPHYLAXIS
     Dosage: 70 MG, UNK
     Route: 048
     Dates: start: 200808, end: 201104
  3. NIACINAMIDE [Concomitant]
     Active Substance: NIACINAMIDE
     Indication: PRODUCT USED FOR UNKNOWN INDICATION
     Dosage: 100 MG, QD
     Route: 065
     Dates: start: 2000
  4. SYNTHROID [Concomitant]
     Active Substance: LEVOTHYROXINE SODIUM
     Indication: HYPOTHYROIDISM
     Dosage: UNK
     Route: 065
     Dates: start: 1997, end: 201103
  5. FOSAMAX [Suspect]
     Active Substance: ALENDRONATE SODIUM
     Indication: OSTEOPOROSIS PROPHYLAXIS
     Dosage: 70 MG, UNK
     Route: 048
     Dates: start: 200201, end: 200808
  6. CHOLECALCIFEROL [Concomitant]
     Active Substance: CHOLECALCIFEROL
     Indication: PRODUCT USED FOR UNKNOWN INDICATION
     Dosage: 1000 IU, BID
     Route: 065
     Dates: start: 2000
  7. CALCIUM (UNSPECIFIED) [Concomitant]
     Active Substance: CALCIUM
     Indication: PRODUCT USED FOR UNKNOWN INDICATION
     Dosage: 600 MG, BID
     Route: 065
     Dates: start: 2000
  8. PYRIDOXINE [Concomitant]
     Active Substance: PYRIDOXINE
     Indication: PRODUCT USED FOR UNKNOWN INDICATION
     Dosage: 100 MG, QD
     Route: 065
     Dates: start: 2000
  9. SYNTHROID [Concomitant]
     Active Substance: LEVOTHYROXINE SODIUM
     Dosage: 125 MCG, QD
     Dates: start: 201103

REACTIONS (38)
  - Sinus bradycardia [Unknown]
  - Electrolyte imbalance [Unknown]
  - Depression [Unknown]
  - Delirium [Recovered/Resolved]
  - Hypokalaemia [Unknown]
  - Macular degeneration [Unknown]
  - Oral surgery [Unknown]
  - Hypersensitivity [Unknown]
  - Vertebroplasty [Unknown]
  - Rib fracture [Unknown]
  - Ulcer [Unknown]
  - Anxiety [Not Recovered/Not Resolved]
  - Pain [Recovering/Resolving]
  - Neurosurgery [Unknown]
  - Urinary tract infection [Recovering/Resolving]
  - Subcutaneous emphysema [Unknown]
  - Interstitial lung disease [Not Recovered/Not Resolved]
  - Neuropathy peripheral [Unknown]
  - Anaemia postoperative [Unknown]
  - Osteopenia [Unknown]
  - Tonsillectomy [Unknown]
  - Psychological trauma [Not Recovered/Not Resolved]
  - Thoracic vertebral fracture [Unknown]
  - Cataract [Unknown]
  - Osteoarthritis [Unknown]
  - Neuropathy peripheral [Unknown]
  - Femur fracture [Recovered/Resolved]
  - Anxiety [Unknown]
  - Breast mass [Unknown]
  - Haemorrhagic anaemia [Recovered/Resolved]
  - Quality of life decreased [Not Recovered/Not Resolved]
  - Fracture delayed union [Recovered/Resolved]
  - Device breakage [Not Recovered/Not Resolved]
  - Spinal cord compression [Unknown]
  - Hyponatraemia [Unknown]
  - Arthralgia [Unknown]
  - Fear [Not Recovered/Not Resolved]
  - Thyroidectomy [Unknown]

NARRATIVE: CASE EVENT DATE: 2009
